FAERS Safety Report 12600826 (Version 2)
Quarter: 2016Q3

REPORT INFORMATION
  Report Type: Spontaneous
  Country: PT (occurrence: PT)
  Receive Date: 20160727
  Receipt Date: 20160906
  Transmission Date: 20161109
  Serious: Yes (Other)
  Sender: FDA-Public Use
  Company Number: PT-BIOGEN-2016BI00271296

PATIENT
  Age: 44 Year
  Sex: Female

DRUGS (2)
  1. TECFIDERA [Suspect]
     Active Substance: DIMETHYL FUMARATE
     Indication: MULTIPLE SCLEROSIS
     Dosage: MAINTENANCE DOSE
     Route: 048
     Dates: start: 20150908, end: 201606
  2. TECFIDERA [Suspect]
     Active Substance: DIMETHYL FUMARATE
     Dosage: 3 WEEKS AT THIS DOSE AND THE REPEAT LAB VALUES
     Route: 048
     Dates: start: 201607, end: 201608

REACTIONS (3)
  - Ear infection bacterial [Recovered/Resolved]
  - Lymphopenia [Not Recovered/Not Resolved]
  - Tonsillitis [Unknown]

NARRATIVE: CASE EVENT DATE: 201608
